FAERS Safety Report 16136386 (Version 1)
Quarter: 2019Q1

REPORT INFORMATION
  Report Type: Spontaneous
  Country: AU (occurrence: AU)
  Receive Date: 20190329
  Receipt Date: 20190329
  Transmission Date: 20190418
  Serious: Yes (Other)
  Sender: FDA-Public Use
  Company Number: AU-SHIRE-AU201909872

PATIENT

DRUGS (2)
  1. ADYNOVATE [Suspect]
     Active Substance: ANTIHEMOPHILIC FACTOR, HUMAN RECOMBINANT
     Indication: FACTOR VIII DEFICIENCY
     Dosage: 50 INTERNATIONAL UNIT/KILOGRAM, 2X A WEEK
     Route: 065
     Dates: start: 2013
  2. ADYNOVATE [Suspect]
     Active Substance: ANTIHEMOPHILIC FACTOR, HUMAN RECOMBINANT
     Dosage: 60 INTERNATIONAL UNIT/KILOGRAM, 2X A WEEK
     Route: 065

REACTIONS (1)
  - Haemorrhage [Recovered/Resolved]
